FAERS Safety Report 9421166 (Version 1)
Quarter: 2013Q3

REPORT INFORMATION
  Report Type: Spontaneous
  Country: AU (occurrence: AU)
  Receive Date: 20130725
  Receipt Date: 20130725
  Transmission Date: 20140515
  Serious: Yes (Other)
  Sender: FDA-Public Use
  Company Number: PHHY2013AU078427

PATIENT
  Age: 44 Year
  Sex: Male

DRUGS (17)
  1. SLOW K [Suspect]
     Dosage: UNK UKN, UNK
  2. METOCLOPRAMIDE SANDOZ [Suspect]
     Dosage: UNK UKN, UNK
  3. CITALOPRAM [Suspect]
     Dosage: UNK UKN, UNK
  4. FENTANYL [Suspect]
     Dosage: UNK UKN, UNK
  5. IRBESARTAN [Suspect]
     Dosage: UNK UKN, UNK
  6. LACTULOSE [Suspect]
     Dosage: UNK UKN, UNK
  7. OMEPRAZOLE [Suspect]
     Dosage: UNK UKN, UNK
  8. PARACETAMOL SANDOZ [Suspect]
     Dosage: UNK UKN, UNK
  9. FOLIC ACID [Suspect]
     Dosage: UNK UKN, UNK
  10. VERAPAMIL HYDROCHLORIDE [Suspect]
     Dosage: UNK UKN, UNK
  11. AMITRIPTYLINE HYDROCHLORIDE [Suspect]
     Dosage: UNK UKN, UNK
  12. DILANTIN [Suspect]
     Dosage: UNK UKN, UNK
  13. ENDONE [Suspect]
     Dosage: UNK UKN, UNK
  14. FABRAZYME [Suspect]
     Dosage: UNK UKN, UNK
  15. LASIX [Suspect]
     Dosage: UNK UKN, UNK
  16. MAGMIN [Suspect]
     Dosage: UNK UKN, UNK
  17. PERIACTIN [Suspect]

REACTIONS (1)
  - Osteomyelitis [Unknown]
